FAERS Safety Report 20664014 (Version 1)
Quarter: 2022Q2

REPORT INFORMATION
  Report Type: Spontaneous
  Country: US (occurrence: US)
  Receive Date: 20220401
  Receipt Date: 20220401
  Transmission Date: 20220720
  Serious: Yes (Other)
  Sender: FDA-Public Use
  Company Number: US-GILEAD-2022-0575538

PATIENT
  Age: 50 Year
  Sex: Female

DRUGS (6)
  1. VEKLURY [Suspect]
     Active Substance: REMDESIVIR
     Indication: COVID-19
     Dosage: 200 MG, DAY 1
     Route: 042
  2. VEKLURY [Suspect]
     Active Substance: REMDESIVIR
     Dosage: 100 MG, QD X4 DAYS
     Route: 042
  3. METOPROLOL [Concomitant]
     Active Substance: METOPROLOL
     Indication: Atrial fibrillation
  4. DEXAMETHASONE [Concomitant]
     Active Substance: DEXAMETHASONE
  5. CEFTRIAXONE [Concomitant]
     Active Substance: CEFTRIAXONE
  6. AZITHROMYCIN [Concomitant]
     Active Substance: AZITHROMYCIN

REACTIONS (2)
  - Sinus arrest [Recovered/Resolved]
  - Sinus bradycardia [Recovered/Resolved]
